FAERS Safety Report 8340678-3 (Version None)
Quarter: 2012Q1

REPORT INFORMATION
  Report Type: 
  Country: None (occurrence: None)
  Receive Date: 20120329
  Receipt Date: 20090904
  Transmission Date: 20120608
  Serious: Yes (Other)
  Sender: FDA-Public Use
  Company Number: PHEH2009US10504

PATIENT
  Sex: Female

DRUGS (1)
  1. EXELON [Suspect]
     Dosage: 9.5 MG, 4.6 MG

REACTIONS (3)
  - DEPRESSION [None]
  - APPETITE DISORDER [None]
  - FUNCTIONAL GASTROINTESTINAL DISORDER [None]
